FAERS Safety Report 5909086-6 (Version None)
Quarter: 2008Q4

REPORT INFORMATION
  Report Type: 
  Country: None (occurrence: None)
  Receive Date: 20081001
  Receipt Date: 20080917
  Transmission Date: 20090506
  Serious: Yes (Other)
  Sender: FDA-Public Use
  Company Number: 1000000996

PATIENT
  Age: 21 Year
  Sex: Male
  Weight: 70 kg

DRUGS (2)
  1. ESCITALOPRAM [Suspect]
     Indication: DEPRESSION
     Dosage: 20 MG (20 MG, 1 IN D) , ORAL
     Route: 048
     Dates: start: 20080905
  2. ESCITALOPRAM [Suspect]
     Indication: DEPRESSION
     Dosage: 20 MG (20 MG, 1 IN 1 D), ORAL
     Route: 048
     Dates: start: 20080501, end: 20080823

REACTIONS (6)
  - ANGER [None]
  - ANXIETY [None]
  - INJURY [None]
  - LACERATION [None]
  - TREMOR [None]
  - VISUAL IMPAIRMENT [None]
